FAERS Safety Report 16037552 (Version 1)
Quarter: 2019Q1

REPORT INFORMATION
  Report Type: Spontaneous
  Country: IE (occurrence: IE)
  Receive Date: 20190305
  Receipt Date: 20190305
  Transmission Date: 20190418
  Serious: Yes (Life-Threatening, Hospitalization)
  Sender: FDA-Public Use
  Company Number: IE-TEVA-2019-IE-1018224

PATIENT
  Age: 37 Year
  Sex: Male
  Weight: 60 kg

DRUGS (2)
  1. PARACETAMOL [Suspect]
     Active Substance: ACETAMINOPHEN
     Route: 048
     Dates: start: 20190129
  2. DIAZEPAM (G) [Suspect]
     Active Substance: DIAZEPAM
     Dosage: 60 TABLETS
     Dates: start: 20190129

REACTIONS (2)
  - Overdose [Not Recovered/Not Resolved]
  - Hepatic failure [Not Recovered/Not Resolved]

NARRATIVE: CASE EVENT DATE: 20190129
